FAERS Safety Report 8954208 (Version 2)
Quarter: 2013Q1

REPORT INFORMATION
  Report Type: Spontaneous
  Country: GB (occurrence: GB)
  Receive Date: 20121207
  Receipt Date: 20130107
  Transmission Date: 20140127
  Serious: Yes (Hospitalization, Other)
  Sender: FDA-Public Use
  Company Number: GB-JNJFOC-20121202900

PATIENT
  Sex: Male

DRUGS (1)
  1. NICORETTE INHALER [Suspect]
     Indication: SMOKING CESSATION THERAPY
     Route: 065
     Dates: start: 2012, end: 2012

REACTIONS (3)
  - Abdominal strangulated hernia [Recovering/Resolving]
  - Malaise [Unknown]
  - Cough [Unknown]
